FAERS Safety Report 9162445 (Version 1)
Quarter: 2013Q1

REPORT INFORMATION
  Report Type: Spontaneous
  Country: US (occurrence: None)
  Receive Date: 20130227
  Receipt Date: 20130227
  Transmission Date: 20140127
  Serious: Yes (Other)
  Sender: FDA-Public Use
  Company Number: FK201300550

PATIENT
  Age: 15 Month
  Sex: Male

DRUGS (7)
  1. METHYLPREDNISOLONE [Suspect]
     Dosage: 5 MG/KG, UNKNOWN INTRAVENUS ( NO OTHERWISE SPECIFIED)
  2. BASILIXIMAB [Suspect]
     Dosage: DAYS 0 AND 4
     Route: 042
  3. TACROLIMUS (TACROLIMUS) [Suspect]
     Dosage: UNKNOWN , TO TARGED TROUGH LEVEL OF 10-12 NG/ML UNKNOWN
  4. PREDNISONE (PREDNISONE) [Suspect]
  5. PREDNISONE (PREDNISONE) [Suspect]
  6. PREDNISONE (PREDNISONE) [Suspect]
  7. PREDNISONE (PREDNISONE) [Suspect]

REACTIONS (2)
  - Castleman^s disease [None]
  - Hyperuricaemia [None]
